FAERS Safety Report 17173142 (Version 1)
Quarter: 2019Q4

REPORT INFORMATION
  Report Type: Spontaneous
  Country: US (occurrence: US)
  Receive Date: 20191219
  Receipt Date: 20191219
  Transmission Date: 20200122
  Serious: No
  Sender: FDA-Public Use
  Company Number: US-CURRAX PHARMACEUTICALS LLC-US-2019PER000065

PATIENT

DRUGS (6)
  1. ROPINIROLE HCL [Concomitant]
     Active Substance: ROPINIROLE HYDROCHLORIDE
     Indication: RESTLESS LEGS SYNDROME
     Dosage: 1 MG, QD
     Route: 048
  2. AMRIX [Concomitant]
     Active Substance: CYCLOBENZAPRINE HYDROCHLORIDE
     Indication: MUSCLE RELAXANT THERAPY
     Dosage: 30 MG, QD
     Route: 048
  3. SILENOR [Concomitant]
     Active Substance: DOXEPIN HYDROCHLORIDE
     Indication: SLEEP DISORDER
     Dosage: 6 MG, QD HS
     Route: 048
  4. HORIZANT [Concomitant]
     Active Substance: GABAPENTIN ENACARBIL
     Indication: RESTLESS LEGS SYNDROME
     Dosage: 600 MG, QD
     Route: 048
  5. ZOHYDRO [Suspect]
     Active Substance: HYDROCODONE BITARTRATE
     Dosage: 10 MG, BID
     Route: 048
     Dates: start: 20190224
  6. ZOHYDRO [Suspect]
     Active Substance: HYDROCODONE BITARTRATE
     Indication: BACK PAIN
     Dosage: 20 MG, BID
     Route: 048
     Dates: end: 20190223

REACTIONS (4)
  - Inadequate analgesia [Unknown]
  - Product quality issue [Unknown]
  - Product dose omission [Unknown]
  - Medication error [Unknown]
